FAERS Safety Report 15323455 (Version 2)
Quarter: 2018Q4

REPORT INFORMATION
  Report Type: Spontaneous
  Country: US (occurrence: US)
  Receive Date: 20180827
  Receipt Date: 20181016
  Transmission Date: 20190204
  Serious: No
  Sender: FDA-Public Use
  Company Number: US-SA-2018SA237880

PATIENT
  Age: 18 Year
  Sex: Male
  Weight: 83.5 kg

DRUGS (2)
  1. DUPIXENT [Suspect]
     Active Substance: DUPILUMAB
     Indication: DERMATITIS ATOPIC
     Dosage: 600 MG, 1X
     Route: 058
     Dates: start: 20180507, end: 20180507
  2. DUPIXENT [Suspect]
     Active Substance: DUPILUMAB
     Dosage: 300 MG, QOW
     Route: 058
     Dates: start: 2018, end: 20180618

REACTIONS (4)
  - Eye discharge [Unknown]
  - Conjunctivitis [Unknown]
  - Eyelid margin crusting [Unknown]
  - Periorbital oedema [Unknown]

NARRATIVE: CASE EVENT DATE: 2018
